FAERS Safety Report 4832669-1 (Version None)
Quarter: 2005Q4

REPORT INFORMATION
  Report Type: 
  Country: None (occurrence: None)
  Receive Date: 20051117
  Receipt Date: 20051107
  Transmission Date: 20060501
  Serious: Yes (Other)
  Sender: FDA-Public Use
  Company Number: 200508343

PATIENT
  Age: 55 Year
  Sex: Female

DRUGS (8)
  1. BOTOX COSMETIC [Suspect]
     Indication: SKIN WRINKLING
     Dosage: 28 UNITS PRN IM,FEW YEARS
     Route: 030
     Dates: start: 20050915
  2. BOTOX COSMETIC [Suspect]
     Indication: SKIN WRINKLING
     Dosage: 28 UNITS ONCE IM
     Route: 030
     Dates: start: 20050130
  3. BOTOX COSMETIC [Suspect]
     Indication: SKIN WRINKLING
     Dosage: 28 UNITS ONCE IM
     Route: 030
     Dates: start: 20041110
  4. BOTOX COSMETIC [Suspect]
     Indication: SKIN WRINKLING
     Dosage: 28 UNITS ONCE IM
     Route: 030
     Dates: start: 20040730
  5. BOTOX COSMETIC [Suspect]
     Indication: SKIN WRINKLING
     Dosage: 28 UNITS ONCE IM
     Route: 030
     Dates: start: 20040503
  6. BOTOX COSMETIC [Suspect]
     Indication: SKIN WRINKLING
     Dosage: 28 UNITS ONCE IM
     Route: 030
     Dates: start: 20040213
  7. BOTOX COSMETIC [Suspect]
     Indication: SKIN WRINKLING
     Dosage: 28 UNITS ONCE IM
     Route: 030
     Dates: start: 20030829
  8. BOTOX COSMETIC [Suspect]
     Indication: SKIN WRINKLING
     Dosage: 28 UNITS ONCE IM
     Route: 030
     Dates: start: 20030411

REACTIONS (5)
  - CONVULSION [None]
  - INCONTINENCE [None]
  - ROAD TRAFFIC ACCIDENT [None]
  - SEBACEOUS CYST EXCISION [None]
  - SYNCOPE VASOVAGAL [None]
